FAERS Safety Report 25359457 (Version 1)
Quarter: 2025Q2

REPORT INFORMATION
  Report Type: Spontaneous
  Country: GB (occurrence: GB)
  Receive Date: 20250526
  Receipt Date: 20250526
  Transmission Date: 20250717
  Serious: Yes (Other)
  Sender: DR REDDYS
  Company Number: None

PATIENT
  Age: 68 Year
  Sex: Female
  Weight: 67 kg

DRUGS (2)
  1. ZOLEDRONIC ACID [Suspect]
     Active Substance: ZOLEDRONIC ACID
     Indication: Product used for unknown indication
     Dosage: 5MG ONCE A YEAR FOR THREE YEARS
     Dates: start: 20250508
  2. LEVOTHYROXINE [Concomitant]
     Active Substance: LEVOTHYROXINE
     Indication: Product used for unknown indication
     Dates: start: 2006

REACTIONS (7)
  - Joint noise [Unknown]
  - Fatigue [Unknown]
  - Arthralgia [Unknown]
  - Myalgia [Unknown]
  - Arthritis [Unknown]
  - Influenza [Not Recovered/Not Resolved]
  - Nausea [Unknown]

NARRATIVE: CASE EVENT DATE: 20250509
